FAERS Safety Report 5133726-5 (Version None)
Quarter: 2006Q4

REPORT INFORMATION
  Report Type: 
  Country: None (occurrence: None)
  Receive Date: 20061024
  Receipt Date: 20061018
  Transmission Date: 20070319
  Serious: Yes (Death)
  Sender: FDA-Public Use
  Company Number: FR-NOVOPROD-257932

PATIENT
  Age: 37 Year
  Sex: Male

DRUGS (2)
  1. NOVOSEVEN [Suspect]
     Indication: HAEMORRHAGE
     Dosage: 120 UG/KG, UNK
     Dates: start: 20061001, end: 20061001
  2. NOVOSEVEN [Suspect]
     Dosage: 90 UNK, UNK
     Dates: start: 20061001, end: 20061001

REACTIONS (2)
  - DRUG INEFFECTIVE [None]
  - MULTI-ORGAN FAILURE [None]
